FAERS Safety Report 22224440 (Version 3)
Quarter: 2023Q2

REPORT INFORMATION
  Report Type: Spontaneous
  Country: US (occurrence: US)
  Receive Date: 20230418
  Receipt Date: 20230424
  Transmission Date: 20230722
  Serious: Yes (Death, Hospitalization, Other)
  Sender: FDA-Public Use
  Company Number: US-BAXTER-2023BAX018650

PATIENT
  Age: 80 Year
  Sex: Female

DRUGS (2)
  1. DOBUTAMINE [Suspect]
     Active Substance: DOBUTAMINE HYDROCHLORIDE
     Indication: Hypotension
     Dosage: 5 MCG/KG/MIN, ADMINISTERED AS PRIMARY INFUSION VIA SPECTRUM IQ INFUSION PUMPS AT AN INFUSION RATE OF
     Route: 065
  2. VASOPRESSIN [Suspect]
     Active Substance: VASOPRESSIN
     Indication: Hypotension
     Dosage: 0.04 UNITS/MIN, ADMINISTERED AS PRIMARY INFUSION VIA SPECTRUM IQ INFUSION PUMPS AT AN INFUSION RATE
     Route: 065

REACTIONS (5)
  - Death [Fatal]
  - Cardiac failure [Unknown]
  - Hypotension [Unknown]
  - Incorrect dose administered [Unknown]
  - Device issue [Unknown]

NARRATIVE: CASE EVENT DATE: 20230408
